FAERS Safety Report 22157898 (Version 8)
Quarter: 2024Q1

REPORT INFORMATION
  Report Type: Spontaneous
  Country: US (occurrence: US)
  Receive Date: 20230330
  Receipt Date: 20240318
  Transmission Date: 20240410
  Serious: Yes (Other)
  Sender: FDA-Public Use
  Company Number: US-PFIZER INC-202300134420

PATIENT
  Age: 81 Year
  Sex: Female
  Weight: 88.45 kg

DRUGS (2)
  1. PREMARIN [Suspect]
     Active Substance: ESTROGENS, CONJUGATED
     Indication: Atrophic vulvovaginitis
     Dosage: 1 GRAM 2X/WK FOR 90 DAY(S)
     Route: 067
  2. PREMARIN [Suspect]
     Active Substance: ESTROGENS, CONJUGATED
     Indication: Incontinence

REACTIONS (5)
  - Pneumonia [Unknown]
  - Oxygen saturation decreased [Unknown]
  - Insomnia [Unknown]
  - Off label use [Unknown]
  - Intentional product misuse [Unknown]
